FAERS Safety Report 7893327-2 (Version None)
Quarter: 2011Q4

REPORT INFORMATION
  Report Type: 
  Country: None (occurrence: None)
  Receive Date: 20111104
  Receipt Date: 20111027
  Transmission Date: 20120403
  Serious: No
  Sender: FDA-Public Use
  Company Number: NZ-B.I. PHARMACEUTICALS,INC./RIDGEFIELD-2011-AU-01771AU

PATIENT
  Sex: Female

DRUGS (8)
  1. DIGOXIN [Concomitant]
     Dosage: 125 MCG
     Dates: start: 20090216
  2. SPIRONOLACTONE [Concomitant]
     Dosage: 12.5 MG
     Dates: start: 20090216
  3. SIMVASTATIN [Concomitant]
     Dosage: 20 MG
     Dates: start: 20090216
  4. FUROSEMIDE [Concomitant]
     Dosage: 80 MG
     Dates: start: 20090216
  5. PRADAXA [Suspect]
     Dosage: 220 MG
     Dates: start: 20110705, end: 20110707
  6. CARVEDILOL [Concomitant]
     Dosage: 7.5 MG
  7. LEVOTHYROXINE SODIUM [Concomitant]
     Dosage: 100MCG + 50MCG ALTERNATE
     Dates: start: 20090216
  8. OMEPRAZOLE [Concomitant]
     Dosage: 20 MG

REACTIONS (1)
  - MALAISE [None]
